FAERS Safety Report 17766330 (Version 1)
Quarter: 2020Q2

REPORT INFORMATION
  Report Type: Spontaneous
  Country: CN (occurrence: CN)
  Receive Date: 20200511
  Receipt Date: 20200511
  Transmission Date: 20200714
  Serious: Yes (Other)
  Sender: FDA-Public Use
  Company Number: CN-PFIZER INC-2020186624

PATIENT
  Age: 64 Year
  Sex: Female

DRUGS (1)
  1. PACLITAXEL. [Suspect]
     Active Substance: PACLITAXEL
     Indication: CERVIX CARCINOMA
     Dosage: 30 MG, 1X/DAY
     Route: 041
     Dates: start: 20200410, end: 20200410

REACTIONS (7)
  - Chest discomfort [Recovering/Resolving]
  - Hypersensitivity [Recovered/Resolved]
  - Hypotension [Recovering/Resolving]
  - Pruritus [Recovering/Resolving]
  - Heart rate decreased [Recovering/Resolving]
  - Indifference [Unknown]
  - Dyspnoea [Recovering/Resolving]

NARRATIVE: CASE EVENT DATE: 20200410
